FAERS Safety Report 7484412-8 (Version None)
Quarter: 2011Q2

REPORT INFORMATION
  Report Type: 
  Country: None (occurrence: None)
  Receive Date: 20110509
  Receipt Date: 20110428
  Transmission Date: 20111010
  Serious: Yes (Death, Hospitalization)
  Sender: FDA-Public Use
  Company Number: 2011001809

PATIENT
  Age: 65 Year
  Sex: Female

DRUGS (6)
  1. GLYBURIDE [Concomitant]
  2. FOLIC ACID [Concomitant]
  3. ERLOTINIB HYDROCHLORIDE [Suspect]
     Indication: LUNG NEOPLASM MALIGNANT
     Dosage: (150 MG,DAILY),ORAL
     Route: 048
     Dates: start: 20110316, end: 20110330
  4. GLYBURIDE [Concomitant]
  5. TRAMADOL HCL [Concomitant]
  6. METFORMIN (METFORMIN) [Concomitant]

REACTIONS (7)
  - ACUTE HEPATIC FAILURE [None]
  - SEPTIC SHOCK [None]
  - DISSEMINATED INTRAVASCULAR COAGULATION [None]
  - GANGRENE [None]
  - ACUTE RESPIRATORY DISTRESS SYNDROME [None]
  - INTERNATIONAL NORMALISED RATIO INCREASED [None]
  - RENAL TUBULAR NECROSIS [None]
